FAERS Safety Report 8437487-3 (Version None)
Quarter: 2012Q2

REPORT INFORMATION
  Report Type: 
  Country: None (occurrence: None)
  Receive Date: 20120614
  Receipt Date: 20120404
  Transmission Date: 20120825
  Serious: No
  Sender: FDA-Public Use
  Company Number: US-AMGEN-USASP2012016547

PATIENT
  Age: 51 Year
  Sex: Female
  Weight: 55.782 kg

DRUGS (2)
  1. WELLBUTRIN XL [Concomitant]
     Indication: DEPRESSION
     Dosage: 150 MG, QD
  2. PROLIA [Suspect]
     Indication: OSTEOPOROSIS POSTMENOPAUSAL
     Dosage: 60 MG, ONE TIME DOSE
     Dates: start: 20120301

REACTIONS (5)
  - FEELING HOT [None]
  - BURNING SENSATION [None]
  - RASH PRURITIC [None]
  - RASH MACULAR [None]
  - RASH ERYTHEMATOUS [None]
